FAERS Safety Report 15885804 (Version 1)
Quarter: 2019Q1

REPORT INFORMATION
  Report Type: Report from Study
  Country: US (occurrence: US)
  Receive Date: 20190129
  Receipt Date: 20190129
  Transmission Date: 20190417
  Serious: Yes (Death)
  Sender: FDA-Public Use
  Company Number: US-EXELIXIS-CABO-19018414

PATIENT
  Age: 53 Year
  Sex: Male
  Weight: 71.66 kg

DRUGS (11)
  1. FENOFIBRATE. [Concomitant]
     Active Substance: FENOFIBRATE
  2. CABOMETYX [Suspect]
     Active Substance: CABOZANTINIB S-MALATE
     Indication: RENAL CELL CARCINOMA
     Dosage: 60 MG, QD
     Route: 048
     Dates: start: 20180831
  3. ASPIRIN. [Concomitant]
     Active Substance: ASPIRIN
  4. GABAPENTIN. [Concomitant]
     Active Substance: GABAPENTIN
  5. SIMVASTATIN. [Concomitant]
     Active Substance: SIMVASTATIN
  6. PROTONIX [Concomitant]
     Active Substance: PANTOPRAZOLE SODIUM
  7. JANUMET [Concomitant]
     Active Substance: METFORMIN HYDROCHLORIDE\SITAGLIPTIN PHOSPHATE
  8. LANTUS [Concomitant]
     Active Substance: INSULIN GLARGINE
  9. LISINOPRIL. [Concomitant]
     Active Substance: LISINOPRIL
  10. LOPERAMIDE [Concomitant]
     Active Substance: LOPERAMIDE
  11. DILAUDID [Concomitant]
     Active Substance: HYDROMORPHONE HYDROCHLORIDE

REACTIONS (1)
  - Death [Fatal]

NARRATIVE: CASE EVENT DATE: 20180910
